FAERS Safety Report 4626984-4 (Version None)
Quarter: 2005Q1

REPORT INFORMATION
  Report Type: 
  Country: None (occurrence: None)
  Receive Date: 20050331
  Receipt Date: 20050322
  Transmission Date: 20050727
  Serious: Yes (Other)
  Sender: FDA-Public Use
  Company Number: 2005-02-1499

PATIENT
  Age: 41 Year
  Sex: Female
  Weight: 70 kg

DRUGS (10)
  1. BETAMETHASONE [Suspect]
  2. CALEYX (LIPOSOMAL DOXORUBICIN) INJECTABLE SOLUTION [Suspect]
     Indication: METASTASES TO BONE
     Dosage: 65 MG* INTRAVENOUS
     Route: 042
  3. CALEYX (LIPOSOMAL DOXORUBICIN) INJECTABLE SOLUTION [Suspect]
     Indication: METASTASES TO LIVER
     Dosage: 65 MG* INTRAVENOUS
     Route: 042
  4. TAXOTERE [Concomitant]
  5. ZOPHREN (ONDANSETRON) [Concomitant]
  6. IMOVANE [Concomitant]
  7. BELICAN [Concomitant]
  8. CORTANCYL [Concomitant]
  9. BELICAN [Concomitant]
  10. LEXOMIL                (BROMAZEPAM) [Concomitant]

REACTIONS (7)
  - AGITATION [None]
  - ANXIETY [None]
  - DEMENTIA [None]
  - DRUG TOXICITY [None]
  - INSOMNIA [None]
  - MUCOSAL INFLAMMATION [None]
  - PALMAR-PLANTAR ERYTHRODYSAESTHESIA SYNDROME [None]
